FAERS Safety Report 7001314-1 (Version None)
Quarter: 2010Q3

REPORT INFORMATION
  Report Type: 
  Country: None (occurrence: None)
  Receive Date: 20100920
  Receipt Date: 20100128
  Transmission Date: 20110219
  Serious: No
  Sender: FDA-Public Use
  Company Number: US-ASTRAZENECA-2010SE04296

PATIENT
  Age: 492 Month
  Sex: Female
  Weight: 113 kg

DRUGS (5)
  1. SEROQUEL [Suspect]
     Indication: MANIA
     Route: 048
     Dates: start: 20091101, end: 20091201
  2. SEROQUEL [Suspect]
     Route: 048
  3. VALPROIC ACID [Concomitant]
  4. CELEXA [Concomitant]
  5. XANAX [Concomitant]

REACTIONS (3)
  - AGITATION [None]
  - FATIGUE [None]
  - PANIC ATTACK [None]
